FAERS Safety Report 21787814 (Version 1)
Quarter: 2022Q4

REPORT INFORMATION
  Report Type: Other
  Country: FR (occurrence: FR)
  Receive Date: 20221228
  Receipt Date: 20221228
  Transmission Date: 20230113
  Serious: Yes (Other)
  Sender: FDA-Public Use
  Company Number: None

PATIENT

DRUGS (15)
  1. THIOGUANINE ANHYDROUS [Suspect]
     Active Substance: THIOGUANINE ANHYDROUS
     Indication: Acute lymphocytic leukaemia
     Dosage: 664 MG, QD TOTAL
     Route: 048
     Dates: start: 20200619, end: 20200630
  2. VINCRISTINE [Suspect]
     Active Substance: VINCRISTINE
     Indication: Acute lymphocytic leukaemia
     Dosage: 51.6 MG, QD, TOTAL
     Route: 042
     Dates: start: 20191021, end: 20210722
  3. CYTARABINE [Suspect]
     Active Substance: CYTARABINE
     Indication: Acute lymphocytic leukaemia
     Dosage: 300 MG, QD TOTAL
     Route: 037
     Dates: start: 20191025, end: 20210729
  4. CYTARABINE [Suspect]
     Active Substance: CYTARABINE
     Dosage: 1.7 G, QD TOTAL
     Route: 042
     Dates: start: 20191211, end: 20200721
  5. HYDROCORTISONE [Suspect]
     Active Substance: HYDROCORTISONE
     Indication: Acute lymphocytic leukaemia
     Dosage: 90 MG, QD TOTAL
     Route: 037
     Dates: start: 20191025, end: 20200622
  6. DEXAMETHASONE [Suspect]
     Active Substance: DEXAMETHASONE
     Indication: Acute lymphocytic leukaemia
     Dosage: 64.4 MG, QD, TOTAL
     Route: 048
     Dates: start: 20200504, end: 20200524
  7. MERCAPTOPURINE [Suspect]
     Active Substance: MERCAPTOPURINE
     Indication: Acute lymphocytic leukaemia
     Dosage: 17.9 G, QD, TOTAL
     Route: 048
     Dates: start: 20191209, end: 20220119
  8. ERWINASE [Suspect]
     Active Substance: ASPARAGINASE ERWINIA CHRYSANTHEMI
     Indication: Acute lymphocytic leukaemia
     Dosage: 193200 IU, QD, TOTAL
     Route: 042
     Dates: start: 20200507, end: 20200520
  9. DOXORUBICIN [Suspect]
     Active Substance: DOXORUBICIN
     Indication: Acute lymphocytic leukaemia
     Dosage: 166 MG, QD TOTAL
     Route: 042
     Dates: start: 20200504, end: 20200525
  10. PEGASPARGASE [Suspect]
     Active Substance: PEGASPARGASE
     Indication: Acute lymphocytic leukaemia
     Dosage: 6500 IU, QD TOTAL
     Route: 042
     Dates: start: 20191026, end: 20191223
  11. DAUNORUBICIN [Suspect]
     Active Substance: DAUNORUBICIN
     Indication: Acute lymphocytic leukaemia
     Dosage: 156 MG, QD TOTAL
     Route: 042
     Dates: start: 20191014, end: 20191105
  12. CYCLOPHOSPHAMIDE [Suspect]
     Active Substance: CYCLOPHOSPHAMIDE
     Indication: Acute lymphocytic leukaemia
     Dosage: 3980 MG, QD, TOTAL
     Route: 042
     Dates: start: 20191209, end: 20200619
  13. METHOTREXATE [Suspect]
     Active Substance: METHOTREXATE
     Indication: Acute lymphocytic leukaemia
     Dosage: 27.5 MG, QD TOTAL
     Route: 042
     Dates: start: 20200227, end: 20200409
  14. METHOTREXATE [Suspect]
     Active Substance: METHOTREXATE
     Dosage: 144 MG, QD TOTAL
     Route: 037
     Dates: start: 20191014, end: 20201016
  15. METHOTREXATE [Suspect]
     Active Substance: METHOTREXATE
     Dosage: 36 MG, 1 DOSE WEEKLY
     Route: 048
     Dates: start: 20210731, end: 20220119

REACTIONS (3)
  - Hepatic steatosis [Not Recovered/Not Resolved]
  - Chronic hepatitis [Not Recovered/Not Resolved]
  - Hepatic fibrosis [Not Recovered/Not Resolved]

NARRATIVE: CASE EVENT DATE: 20220316
